FAERS Safety Report 5488033-8 (Version None)
Quarter: 2007Q4

REPORT INFORMATION
  Report Type: 
  Country: None (occurrence: None)
  Receive Date: 20071017
  Receipt Date: 20071010
  Transmission Date: 20080405
  Serious: Yes (Other)
  Sender: FDA-Public Use
  Company Number: NO-JNJFOC-20071003653

PATIENT
  Age: 18 Year
  Sex: Female

DRUGS (1)
  1. CONCERTA [Suspect]
     Indication: INTENTIONAL OVERDOSE

REACTIONS (8)
  - CONSCIOUSNESS FLUCTUATING [None]
  - DIZZINESS [None]
  - DRUG LEVEL INCREASED [None]
  - DYSKINESIA [None]
  - HEART RATE INCREASED [None]
  - HYPERTENSION [None]
  - INTENTIONAL OVERDOSE [None]
  - TREMOR [None]
